FAERS Safety Report 12913096 (Version 1)
Quarter: 2016Q4

REPORT INFORMATION
  Report Type: Spontaneous
  Country: US (occurrence: US)
  Receive Date: 20161104
  Receipt Date: 20161104
  Transmission Date: 20170207
  Serious: No
  Sender: FDA-Public Use
  Company Number: US-ANACOR-2016ANA00228

PATIENT
  Age: 48 Year
  Sex: Male

DRUGS (7)
  1. HCTZ [Concomitant]
     Active Substance: HYDROCHLOROTHIAZIDE
  2. LISINOPRIL. [Concomitant]
     Active Substance: LISINOPRIL
  3. MENS MULTIVITAMIN [Concomitant]
     Dosage: UNK, 2X/WEEK
  4. CELESTONE [Concomitant]
     Active Substance: BETAMETHASONE
     Dosage: 9 MG, ONCE
     Route: 030
     Dates: start: 20160527, end: 20160527
  5. LIPITOR [Concomitant]
     Active Substance: ATORVASTATIN CALCIUM
  6. KENALOG [Concomitant]
     Active Substance: TRIAMCINOLONE ACETONIDE
     Dosage: 100 MG, UNK
     Route: 030
     Dates: start: 20160527, end: 20160527
  7. KERYDIN [Suspect]
     Active Substance: TAVABOROLE
     Indication: ONYCHOMYCOSIS
     Dosage: UNK, 10 TIMES A WEEK
     Route: 061
     Dates: start: 20151130, end: 2016

REACTIONS (3)
  - Full blood count abnormal [Not Recovered/Not Resolved]
  - Nail discolouration [Not Recovered/Not Resolved]
  - Inappropriate schedule of drug administration [Recovered/Resolved]

NARRATIVE: CASE EVENT DATE: 20151130
